FAERS Safety Report 21667740 (Version 2)
Quarter: 2022Q4

REPORT INFORMATION
  Report Type: Spontaneous
  Country: US (occurrence: US)
  Receive Date: 20221201
  Receipt Date: 20221202
  Transmission Date: 20230113
  Serious: No
  Sender: FDA-Public Use
  Company Number: US-PFIZER INC-202201337228

PATIENT
  Sex: Male

DRUGS (1)
  1. SILVADENE [Suspect]
     Active Substance: SILVER SULFADIAZINE
     Indication: Ischaemia
     Dosage: UNK

REACTIONS (3)
  - Drug hypersensitivity [Unknown]
  - Fat necrosis [Unknown]
  - Off label use [Unknown]
